FAERS Safety Report 8573379-7 (Version None)
Quarter: 2012Q3

REPORT INFORMATION
  Report Type: 
  Country: None (occurrence: None)
  Receive Date: 20120806
  Receipt Date: 20120802
  Transmission Date: 20120928
  Serious: Yes (Death, Hospitalization, Other)
  Sender: FDA-Public Use
  Company Number: US-PFIZER INC-2012161413

PATIENT
  Age: 72 Year
  Sex: Male
  Weight: 58.957 kg

DRUGS (2)
  1. VIAGRA [Suspect]
     Indication: SEXUAL DYSFUNCTION
     Dosage: UNK, ONCE OR TWICE A WEEK
  2. ASPIRIN [Concomitant]
     Indication: HYPERTENSION
     Dosage: 81 MG, DAILY

REACTIONS (1)
  - RECTAL CANCER METASTATIC [None]
